FAERS Safety Report 21887557 (Version 1)
Quarter: 2023Q1

REPORT INFORMATION
  Report Type: Spontaneous
  Country: DE (occurrence: DE)
  Receive Date: 20230120
  Receipt Date: 20230120
  Transmission Date: 20230418
  Serious: Yes (Hospitalization)
  Sender: FDA-Public Use
  Company Number: None

PATIENT
  Age: 86 Year
  Sex: Female
  Weight: 64 kg

DRUGS (8)
  1. TAPENTADOL [Concomitant]
     Active Substance: TAPENTADOL
     Indication: Product used for unknown indication
     Dosage: 58.24 MG, BID
     Route: 048
  2. CARVEDILOL [Concomitant]
     Active Substance: CARVEDILOL
     Indication: Product used for unknown indication
     Dosage: 25 MG, QD
     Route: 048
  3. METAMIZOL [Concomitant]
     Active Substance: METAMIZOLE SODIUM
     Indication: Product used for unknown indication
     Dosage: 500 MG, BID
     Route: 048
  4. INSULIN LISPRO [Suspect]
     Active Substance: INSULIN LISPRO
     Indication: Product used for unknown indication
     Dosage: 300 IU
     Route: 058
  5. CANDESARTAN [Concomitant]
     Active Substance: CANDESARTAN
     Indication: Product used for unknown indication
     Dosage: 16 MG, QD
     Route: 048
  6. LEVOTHYROXINUM NATRICUM [Concomitant]
     Indication: Product used for unknown indication
     Dosage: 50 ?G, QD
     Route: 048
  7. PROTAPHANE [Suspect]
     Active Substance: INSULIN HUMAN
     Indication: Product used for unknown indication
     Dosage: 300 IU, ACCORDING TO THE SCHEME
     Route: 058
  8. SIMVASTATIN [Concomitant]
     Active Substance: SIMVASTATIN
     Indication: Product used for unknown indication
     Dosage: 40 MG, QD
     Route: 048

REACTIONS (8)
  - Musculoskeletal pain [Unknown]
  - Confusional state [Unknown]
  - Malaise [Unknown]
  - Hypertension [Unknown]
  - General physical health deterioration [Unknown]
  - Pruritus [Unknown]
  - Rash [Unknown]
  - Hyperglycaemia [Unknown]
